FAERS Safety Report 20009415 (Version 1)
Quarter: 2021Q4

REPORT INFORMATION
  Report Type: Spontaneous
  Country: US (occurrence: US)
  Receive Date: 20211028
  Receipt Date: 20211028
  Transmission Date: 20220304
  Serious: Yes (Life-Threatening)
  Sender: FDA-Public Use
  Company Number: None

PATIENT
  Age: 67 Year
  Sex: Female
  Weight: 63.9 kg

DRUGS (1)
  1. CASIRIVIMAB\IMDEVIMAB [Suspect]
     Active Substance: CASIRIVIMAB\IMDEVIMAB
     Indication: COVID-19 prophylaxis
     Dosage: ?          QUANTITY:4 INJECTION(S);OTHER FREQUENCY:ONCE;OTHER ROUTE:4 SUB-CUTANEOUS INJECTIONS OF 2.
     Dates: start: 20210915, end: 20210915

REACTIONS (7)
  - Blood pressure decreased [None]
  - Heart rate decreased [None]
  - Taste disorder [None]
  - Feeling abnormal [None]
  - Dizziness [None]
  - Feeling abnormal [None]
  - Myocardial strain imaging [None]

NARRATIVE: CASE EVENT DATE: 20210915
